FAERS Safety Report 22347909 (Version 1)
Quarter: 2023Q2

REPORT INFORMATION
  Report Type: Spontaneous
  Country: FR (occurrence: FR)
  Receive Date: 20230522
  Receipt Date: 20230522
  Transmission Date: 20230722
  Serious: Yes (Other)
  Sender: FDA-Public Use
  Company Number: FR-AFSSAPS-BS2023000369

PATIENT
  Age: 72 Year
  Sex: Male
  Weight: 71 kg

DRUGS (3)
  1. CLOPIDOGREL BISULFATE [Suspect]
     Active Substance: CLOPIDOGREL BISULFATE
     Indication: Myocardial ischaemia
     Dosage: 75 MILLIGRAM, ONCE A DAY
     Route: 048
     Dates: end: 20221203
  2. ELIQUIS [Suspect]
     Active Substance: APIXABAN
     Indication: Atrial fibrillation
     Dosage: 5 MILLIGRAM, TWO TIMES A DAY
     Route: 048
     Dates: start: 20221204, end: 20221214
  3. LOVENOX [Suspect]
     Active Substance: ENOXAPARIN SODIUM
     Indication: Atrial fibrillation
     Dosage: 7000 INTERNATIONAL UNIT, TWO TIMES A DAY
     Route: 058
     Dates: start: 20221128, end: 20221204

REACTIONS (1)
  - Pelvic haematoma [Recovered/Resolved]

NARRATIVE: CASE EVENT DATE: 20221207
